FAERS Safety Report 9562641 (Version 3)
Quarter: 2013Q4

REPORT INFORMATION
  Report Type: Spontaneous
  Country: US (occurrence: US)
  Receive Date: 20130927
  Receipt Date: 20131017
  Transmission Date: 20140711
  Serious: Yes (Hospitalization)
  Sender: FDA-Public Use
  Company Number: US-BAXTER-2013BAX036841

PATIENT
  Sex: Female

DRUGS (1)
  1. DIANEAL LOW CALCIUM [Suspect]
     Indication: PERITONEAL DIALYSIS
     Route: 033
     Dates: start: 201111, end: 20130917

REACTIONS (3)
  - Pseudomonas infection [Recovering/Resolving]
  - Catheter site infection [Recovering/Resolving]
  - Peritoneal dialysis complication [Recovered/Resolved]
